FAERS Safety Report 9165844 (Version 1)
Quarter: 2013Q1

REPORT INFORMATION
  Report Type: Spontaneous
  Country: PL (occurrence: PL)
  Receive Date: 20130315
  Receipt Date: 20130315
  Transmission Date: 20140127
  Serious: Yes (Hospitalization)
  Sender: FDA-Public Use
  Company Number: PL-ROXANE LABORATORIES, INC.-2013-RO-00363RO

PATIENT
  Age: 13 Year
  Sex: Female

DRUGS (3)
  1. CLARITHROMYCIN [Suspect]
     Indication: CHRONIC SINUSITIS
     Route: 048
     Dates: start: 20110114, end: 20110119
  2. CLEMASTINE [Suspect]
     Indication: CHRONIC SINUSITIS
     Route: 048
     Dates: start: 20110114
  3. FUSAFUNGINE [Suspect]
     Indication: CHRONIC SINUSITIS
     Route: 055
     Dates: start: 20110114

REACTIONS (12)
  - Substance-induced psychotic disorder [Recovered/Resolved]
  - Altered state of consciousness [Recovered/Resolved]
  - Sluggishness [None]
  - Restlessness [None]
  - Irritability [None]
  - Sleep disorder [None]
  - Anxiety [None]
  - Disorientation [None]
  - Hallucinations, mixed [None]
  - Thinking abnormal [None]
  - Disturbance in attention [None]
  - Affect lability [None]
